FAERS Safety Report 19820709 (Version 1)
Quarter: 2021Q3

REPORT INFORMATION
  Report Type: Spontaneous
  Country: US (occurrence: US)
  Receive Date: 20210912
  Receipt Date: 20210912
  Transmission Date: 20211014
  Serious: Yes (Other)
  Sender: FDA-Public Use
  Company Number: None

PATIENT
  Age: 73 Year
  Sex: Female
  Weight: 85.5 kg

DRUGS (6)
  1. LISINOPRIL. [Concomitant]
     Active Substance: LISINOPRIL
  2. LEVOTHYROXINE. [Concomitant]
     Active Substance: LEVOTHYROXINE
  3. MULTIVITAMIN [Concomitant]
     Active Substance: VITAMINS
  4. AMLODOPINE [Concomitant]
     Active Substance: AMLODIPINE BESYLATE
  5. ONDANSETRON ORALLY DISINTEGRATING TABLETS [Suspect]
     Active Substance: ONDANSETRON
     Indication: NAUSEA
     Dosage: ?          QUANTITY:18 TABLET(S);?
     Route: 048
     Dates: start: 20210907, end: 20210910
  6. PHENYLALANINE [EXCIPIENT] [Suspect]
     Active Substance: PHENYLALANINE

REACTIONS (9)
  - Dyskinesia [None]
  - Dry mouth [None]
  - Incoherent [None]
  - Adverse drug reaction [None]
  - Screaming [None]
  - Speech disorder [None]
  - Muscle tightness [None]
  - Eye movement disorder [None]
  - Facial spasm [None]

NARRATIVE: CASE EVENT DATE: 20210909
